FAERS Safety Report 24347841 (Version 1)
Quarter: 2024Q3

REPORT INFORMATION
  Report Type: Spontaneous
  Country: US (occurrence: US)
  Receive Date: 20240922
  Receipt Date: 20240922
  Transmission Date: 20241017
  Serious: No
  Sender: NOVARTIS
  Company Number: US-HALEON-2197630

PATIENT
  Sex: Female

DRUGS (13)
  1. TERBINAFINE [Suspect]
     Active Substance: TERBINAFINE
     Indication: Mycobacterium avium complex infection
     Dosage: 1 %
     Route: 065
  2. ACETAMINOPHEN [Suspect]
     Active Substance: ACETAMINOPHEN
     Indication: Mycobacterium avium complex infection
     Dosage: 500 MG
     Route: 065
  3. VITAMIN D3 [Suspect]
     Active Substance: CHOLECALCIFEROL
     Indication: Mycobacterium avium complex infection
     Dosage: 50 UG
     Route: 065
  4. AZITHROMYCIN [Suspect]
     Active Substance: AZITHROMYCIN
     Indication: Mycobacterium avium complex infection
     Dosage: 500 MG
     Route: 065
  5. PRAVASTATIN [Suspect]
     Active Substance: PRAVASTATIN
     Indication: Mycobacterium avium complex infection
     Dosage: 20 MG
     Route: 065
  6. ETHAMBUTOL [Suspect]
     Active Substance: ETHAMBUTOL HYDROCHLORIDE
     Indication: Mycobacterium avium complex infection
     Dosage: 100 MG
     Route: 065
  7. ETHAMBUTOL [Suspect]
     Active Substance: ETHAMBUTOL HYDROCHLORIDE
     Dosage: 400 MG
     Route: 065
  8. OXYCODONE [Suspect]
     Active Substance: OXYCODONE
     Indication: Mycobacterium avium complex infection
     Dosage: 5 MG
     Route: 065
  9. RESTASIS [Suspect]
     Active Substance: CYCLOSPORINE
     Indication: Mycobacterium avium complex infection
     Dosage: 0.05 %
     Route: 065
  10. ALBUTEROL SULFATE [Suspect]
     Active Substance: ALBUTEROL SULFATE
     Indication: Mycobacterium avium complex infection
     Dosage: 90 UG
     Route: 065
  11. ASPIRIN [Suspect]
     Active Substance: ASPIRIN
     Indication: Mycobacterium avium complex infection
     Dosage: 81 MG
     Route: 065
  12. CICLOPIROX [Suspect]
     Active Substance: CICLOPIROX
     Indication: Mycobacterium avium complex infection
     Dosage: 8 %, TOPICAL
     Route: 065
  13. CAFFEINE CITRATE [Suspect]
     Active Substance: CAFFEINE CITRATE
     Indication: Mycobacterium avium complex infection
     Dosage: UNK
     Route: 065

REACTIONS (1)
  - Drug resistance [Unknown]
